FAERS Safety Report 15555532 (Version 1)
Quarter: 2018Q4

REPORT INFORMATION
  Report Type: Spontaneous
  Country: US (occurrence: US)
  Receive Date: 20181026
  Receipt Date: 20181026
  Transmission Date: 20190205
  Serious: Yes (Other)
  Sender: FDA-Public Use
  Company Number: US-PFIZER INC-2018426034

PATIENT
  Age: 67 Year
  Sex: Male
  Weight: 96.16 kg

DRUGS (1)
  1. LYRICA [Suspect]
     Active Substance: PREGABALIN
     Indication: NEUROPATHY PERIPHERAL
     Dosage: UNK

REACTIONS (5)
  - Hip arthroplasty [Unknown]
  - Lower limb fracture [Unknown]
  - Atrioventricular block [Unknown]
  - Fall [Unknown]
  - Localised infection [Unknown]
